FAERS Safety Report 12165700 (Version 5)
Quarter: 2016Q2

REPORT INFORMATION
  Report Type: Spontaneous
  Country: US (occurrence: US)
  Receive Date: 20160309
  Receipt Date: 20160421
  Transmission Date: 20160815
  Serious: Yes (Other)
  Sender: FDA-Public Use
  Company Number: US-JNJFOC-20160226757

PATIENT
  Age: 63 Year
  Sex: Female
  Weight: 49.9 kg

DRUGS (33)
  1. COZAAR [Concomitant]
     Active Substance: LOSARTAN POTASSIUM
     Route: 048
     Dates: start: 20151028
  2. TENORMIN [Concomitant]
     Active Substance: ATENOLOL
     Route: 048
     Dates: start: 20151112, end: 20160121
  3. FOLIC ACID. [Concomitant]
     Active Substance: FOLIC ACID
  4. CODEINE [Concomitant]
     Active Substance: CODEINE
     Route: 048
     Dates: start: 20150924
  5. ATENOLOL. [Concomitant]
     Active Substance: ATENOLOL
     Route: 065
  6. WELLBUTRIN [Concomitant]
     Active Substance: BUPROPION HYDROCHLORIDE
     Route: 048
  7. PLAQUENIL [Concomitant]
     Active Substance: HYDROXYCHLOROQUINE SULFATE
     Route: 048
     Dates: start: 20150908
  8. TYLENOL WITH CODEINE [Suspect]
     Active Substance: ACETAMINOPHEN\CODEINE PHOSPHATE
     Indication: ANTIDIARRHOEAL SUPPORTIVE CARE
     Dosage: ACETAMINOPHEN 300 MG CODEINE 30 MG
     Route: 048
     Dates: start: 20150819
  9. BIOTIN [Concomitant]
     Active Substance: BIOTIN
     Indication: CONNECTIVE TISSUE DISORDER
     Route: 048
     Dates: start: 20160112
  10. CLOBETASOL [Concomitant]
     Active Substance: CLOBETASOL
     Route: 065
     Dates: start: 20150819
  11. CARAFATE [Concomitant]
     Active Substance: SUCRALFATE
     Route: 048
  12. LEVBID [Concomitant]
     Active Substance: HYOSCYAMINE SULFATE
     Indication: MUSCLE SPASMS
     Route: 048
  13. QUESTRAN [Concomitant]
     Active Substance: CHOLESTYRAMINE
     Route: 065
  14. IMODIUM [Concomitant]
     Active Substance: LOPERAMIDE HYDROCHLORIDE
     Route: 065
  15. CALCIUM [Concomitant]
     Active Substance: CALCIUM
     Route: 065
  16. PRED FORTE [Concomitant]
     Active Substance: PREDNISOLONE ACETATE
     Indication: PREMEDICATION
     Route: 065
     Dates: start: 20160112
  17. AMLODIPINE [Concomitant]
     Active Substance: AMLODIPINE BESYLATE
     Route: 065
  18. XIFAXAN [Concomitant]
     Active Substance: RIFAXIMIN
     Indication: OVERGROWTH BACTERIAL
     Route: 065
  19. LAC-HYDRIN [Concomitant]
     Active Substance: AMMONIUM LACTATE
     Route: 065
     Dates: start: 20151221
  20. NIZORAL [Concomitant]
     Active Substance: KETOCONAZOLE
     Route: 065
  21. QUESTRAN [Concomitant]
     Active Substance: CHOLESTYRAMINE
     Dosage: TAKE 2 PACKETS BY MOUTH 2 TIMES DAILY??4 GRAM
     Route: 048
  22. REMICADE [Suspect]
     Active Substance: INFLIXIMAB
     Indication: CROHN^S DISEASE
     Dosage: 4 VIALS
     Route: 042
     Dates: start: 2010
  23. TERAZOL 3 [Concomitant]
     Active Substance: TERCONAZOLE
     Route: 067
     Dates: start: 20160121
  24. ERYTHROMYCIN. [Concomitant]
     Active Substance: ERYTHROMYCIN
     Route: 047
     Dates: start: 20160112
  25. FOLVITE [Concomitant]
     Active Substance: FOLIC ACID
     Route: 048
     Dates: start: 20160112
  26. OFLOXACIN. [Concomitant]
     Active Substance: OFLOXACIN
     Route: 047
     Dates: start: 20160112
  27. PRED FORTE [Concomitant]
     Active Substance: PREDNISOLONE ACETATE
     Indication: PREMEDICATION
     Dosage: VARIABLE ONCE DAILY TO TWICE DAILY
     Route: 065
     Dates: start: 20160126
  28. XANAX [Concomitant]
     Active Substance: ALPRAZOLAM
     Route: 048
  29. PROZAC [Concomitant]
     Active Substance: FLUOXETINE HYDROCHLORIDE
     Route: 048
     Dates: start: 20151014
  30. DEXILANT [Concomitant]
     Active Substance: DEXLANSOPRAZOLE
     Route: 048
  31. NORVASC [Concomitant]
     Active Substance: AMLODIPINE BESYLATE
     Route: 048
     Dates: start: 20160121, end: 20160121
  32. ERYTHROMYCIN. [Concomitant]
     Active Substance: ERYTHROMYCIN
     Route: 047
     Dates: start: 20160126, end: 20160128
  33. IMODIUM A-D [Concomitant]
     Active Substance: LOPERAMIDE HYDROCHLORIDE
     Route: 048

REACTIONS (17)
  - Off label use [Unknown]
  - Foot deformity [Unknown]
  - Ileostomy [Unknown]
  - Pain [Unknown]
  - Pruritus [Unknown]
  - Cystoid macular oedema [Recovered/Resolved]
  - Herpes zoster [Unknown]
  - Pneumonia [Unknown]
  - Furuncle [Unknown]
  - Body height decreased [Unknown]
  - Dyspepsia [Not Recovered/Not Resolved]
  - Retinal oedema [Unknown]
  - Surgery [Unknown]
  - Anorectal operation [Unknown]
  - Immunosuppression [Unknown]
  - Cataract [Unknown]
  - Product use issue [Unknown]

NARRATIVE: CASE EVENT DATE: 2010
